FAERS Safety Report 9270343 (Version 1)
Quarter: 2013Q2

REPORT INFORMATION
  Report Type: Spontaneous
  Country: BR (occurrence: BR)
  Receive Date: 20130503
  Receipt Date: 20130503
  Transmission Date: 20140414
  Serious: Yes (Other)
  Sender: FDA-Public Use
  Company Number: BR-ELI_LILLY_AND_COMPANY-BR201303006872

PATIENT
  Sex: Female

DRUGS (2)
  1. HUMALOG LISPRO [Suspect]
     Indication: DIABETES MELLITUS
     Dosage: UNK, UNKNOWN
     Route: 058
  2. LANTUS [Concomitant]
     Dosage: 36 IU, EACH MORNING
     Route: 065

REACTIONS (2)
  - Laryngeal oedema [Recovered/Resolved]
  - Feeling abnormal [Recovered/Resolved]
